FAERS Safety Report 7675755-3 (Version None)
Quarter: 2011Q3

REPORT INFORMATION
  Report Type: 
  Country: None (occurrence: None)
  Receive Date: 20110810
  Receipt Date: 20110802
  Transmission Date: 20111222
  Serious: Yes (Hospitalization, Other)
  Sender: FDA-Public Use
  Company Number: US-ASTRAZENECA-2011SE24703

PATIENT
  Age: 20054 Day
  Sex: Male
  Weight: 81.2 kg

DRUGS (11)
  1. CLONAZEPAM [Concomitant]
     Dosage: 1 MG
  2. DULCOLAX [Concomitant]
     Dosage: PER DAY
  3. MIRALAX [Concomitant]
  4. SEROQUEL [Suspect]
     Dosage: 500 MG AM AND 100 MG PM
     Route: 048
  5. DILANTIN [Concomitant]
     Dosage: 125 MG
  6. COLACE [Concomitant]
  7. PAROXETINE HCL [Concomitant]
     Dosage: 20 MG
  8. PLAVIX [Concomitant]
  9. DILANTIN [Concomitant]
  10. ALPRAZOLAM [Concomitant]
     Dosage: 0.5 MG
  11. LOVENOX [Concomitant]

REACTIONS (14)
  - LEG AMPUTATION [None]
  - PERIPHERAL ISCHAEMIA [None]
  - ARTERIAL BYPASS OPERATION [None]
  - DIABETES MELLITUS [None]
  - BURNING SENSATION [None]
  - DEEP VEIN THROMBOSIS [None]
  - HYPOGLYCAEMIA [None]
  - PERIPHERAL CIRCULATORY FAILURE [None]
  - OVERWEIGHT [None]
  - THROMBECTOMY [None]
  - PAIN IN EXTREMITY [None]
  - TOBACCO ABUSE [None]
  - POOR PERIPHERAL CIRCULATION [None]
  - ARTERECTOMY [None]
